FAERS Safety Report 7992284-8 (Version None)
Quarter: 2011Q4

REPORT INFORMATION
  Report Type: 
  Country: None (occurrence: None)
  Receive Date: 20111219
  Receipt Date: 20110629
  Transmission Date: 20120403
  Serious: Yes (Other)
  Sender: FDA-Public Use
  Company Number: US-ASTRAZENECA-2011SE38954

PATIENT
  Age: 66 Year
  Sex: Male

DRUGS (3)
  1. CRESTOR [Suspect]
     Route: 048
  2. FISH OIL [Concomitant]
  3. GEMFIBROZIL [Concomitant]

REACTIONS (2)
  - RHABDOMYOLYSIS [None]
  - WEIGHT DECREASED [None]
